FAERS Safety Report 10686956 (Version 2)
Quarter: 2015Q1

REPORT INFORMATION
  Report Type: Spontaneous
  Country: FR (occurrence: FR)
  Receive Date: 20150102
  Receipt Date: 20150116
  Transmission Date: 20150720
  Serious: Yes (Death, Hospitalization, Other)
  Sender: FDA-Public Use
  Company Number: FR-009507513-1412FRA010615

PATIENT
  Age: 46 Year
  Sex: Female

DRUGS (9)
  1. TARCEVA [Suspect]
     Active Substance: ERLOTINIB HYDROCHLORIDE
     Indication: BRONCHIAL CARCINOMA
     Dosage: 150 MG, QD
     Dates: start: 20141029, end: 20141106
  2. FENTANYL. [Suspect]
     Active Substance: FENTANYL
     Indication: SEPTIC SHOCK
     Dosage: 500 MICROGRAM, QH
     Route: 042
     Dates: start: 20141024, end: 20141107
  3. ACUPAN [Concomitant]
     Active Substance: NEFOPAM HYDROCHLORIDE
     Dosage: UNK
     Dates: start: 20141024, end: 20141025
  4. TIENAM IV 250MG/250MG, POUDRE POUR PERFUSION [Suspect]
     Active Substance: CILASTATIN SODIUM\IMIPENEM
     Dosage: 4 G, TID
     Route: 042
     Dates: start: 20141025, end: 20141104
  5. ACETAMINOPHEN. [Suspect]
     Active Substance: ACETAMINOPHEN
     Dosage: 1G, QID
     Route: 042
     Dates: start: 20141024, end: 20141102
  6. CORDARONE [Suspect]
     Active Substance: AMIODARONE HYDROCHLORIDE
     Indication: ATRIAL FIBRILLATION
     Dosage: 1200 MG, QD
     Route: 042
     Dates: start: 20141026, end: 20141027
  7. HYPNOVEL [Suspect]
     Active Substance: MIDAZOLAM\MIDAZOLAM HYDROCHLORIDE
     Dosage: 10 MG, QH
     Route: 042
     Dates: start: 20141024, end: 20141107
  8. PROPOFOL. [Concomitant]
     Active Substance: PROPOFOL
  9. CORDARONE [Suspect]
     Active Substance: AMIODARONE HYDROCHLORIDE
     Indication: ARRHYTHMIA

REACTIONS (2)
  - Multi-organ failure [Fatal]
  - Hepatitis [Fatal]

NARRATIVE: CASE EVENT DATE: 20141104
